FAERS Safety Report 13758440 (Version 1)
Quarter: 2017Q3

REPORT INFORMATION
  Report Type: Spontaneous
  Country: US (occurrence: US)
  Receive Date: 20170716
  Receipt Date: 20170716
  Transmission Date: 20171127
  Serious: Yes (Hospitalization)
  Sender: FDA-Public Use
  Company Number: None

PATIENT
  Age: 5 Year
  Sex: Male
  Weight: 16.2 kg

DRUGS (1)
  1. METHOTREXATE. [Suspect]
     Active Substance: METHOTREXATE
     Dates: end: 20170510

REACTIONS (6)
  - Apnoea [None]
  - Seizure [None]
  - Leukoencephalopathy [None]
  - Vomiting [None]
  - Respiratory failure [None]
  - Blood pH decreased [None]

NARRATIVE: CASE EVENT DATE: 20170520
